FAERS Safety Report 4728323-7 (Version None)
Quarter: 2005Q3

REPORT INFORMATION
  Report Type: 
  Country: None (occurrence: None)
  Receive Date: 20050727
  Receipt Date: 20050714
  Transmission Date: 20060218
  Serious: Yes (Hospitalization)
  Sender: FDA-Public Use
  Company Number: 2005100908

PATIENT
  Age: 42 Year
  Sex: Female

DRUGS (4)
  1. NORVASC [Suspect]
     Indication: HYPERTENSION
     Dosage: 5 MG (5 MG, 1 IN 1 D), ORAL
     Route: 048
     Dates: start: 20040303
  2. DEPAKENE [Concomitant]
  3. LUVOX [Concomitant]
  4. AMOXAN (AMOXAPINE) [Concomitant]

REACTIONS (1)
  - HENOCH-SCHONLEIN PURPURA [None]
